FAERS Safety Report 7141817-2 (Version None)
Quarter: 2010Q4

REPORT INFORMATION
  Report Type: 
  Country: None (occurrence: None)
  Receive Date: 20101207
  Receipt Date: 20101110
  Transmission Date: 20110411
  Serious: No
  Sender: FDA-Public Use
  Company Number: US-PFIZER INC-2010149712

PATIENT
  Age: 33 Year
  Sex: Female
  Weight: 63.492 kg

DRUGS (1)
  1. ADVIL [Suspect]
     Dosage: 1 TAB, EVERY 4-6 HOURS
     Route: 048
     Dates: start: 20101001

REACTIONS (1)
  - ABDOMINAL PAIN UPPER [None]
